FAERS Safety Report 6252980-X (Version None)
Quarter: 2009Q2

REPORT INFORMATION
  Report Type: 
  Country: None (occurrence: None)
  Receive Date: 20090629
  Receipt Date: 20090629
  Transmission Date: 20091009
  Serious: Yes (Hospitalization)
  Sender: FDA-Public Use
  Company Number: None

PATIENT
  Sex: Female
  Weight: 127.0072 kg

DRUGS (3)
  1. VALPROIC ACID [Suspect]
     Indication: BIPOLAR DISORDER
     Dosage: 500 MG 2 AT BEDTIME PO
     Route: 048
     Dates: start: 20080728, end: 20081227
  2. VALPROIC ACID [Suspect]
     Indication: SCHIZOAFFECTIVE DISORDER
     Dosage: 500 MG 2 AT BEDTIME PO
     Route: 048
     Dates: start: 20080728, end: 20081227
  3. RISPERDAL [Concomitant]

REACTIONS (4)
  - MANIA [None]
  - NAUSEA [None]
  - PRODUCT SUBSTITUTION ISSUE [None]
  - PSYCHOTIC DISORDER [None]
